FAERS Safety Report 14541774 (Version 1)
Quarter: 2018Q1

REPORT INFORMATION
  Report Type: Spontaneous
  Country: SE (occurrence: SE)
  Receive Date: 20180216
  Receipt Date: 20180216
  Transmission Date: 20180509
  Serious: Yes (Death)
  Sender: FDA-Public Use
  Company Number: SE-TEVA-2018-SE-857657

PATIENT
  Age: 77 Year
  Sex: Female

DRUGS (22)
  1. PROPAVAN 25 MG TABLET [Concomitant]
     Active Substance: PROPIOMAZINE
     Route: 065
  2. TROMBYL [Suspect]
     Active Substance: ASPIRIN
     Dosage: 75 MILLIGRAM DAILY;
     Route: 065
  3. DEXAFREE 1 MG/ML EYE DROPS, SOLUTION [Concomitant]
     Route: 065
  4. METHOTREXATE ORION 2,5 MG TABLET [Concomitant]
     Route: 065
  5. ATORVASTATIN ACTAVIS 20 MG FILM-COATED TABLET [Concomitant]
     Route: 065
  6. PREDNISOLON PFIZER 5 MG TABLET [Concomitant]
     Route: 065
  7. OCULENTUM SIMPLEX APL  EYE OINTMENT [Concomitant]
     Route: 065
  8. GLYTRIN 0,4 MG/DOSE SUBLINGUAL SPRAY [Concomitant]
     Route: 065
  9. VALTREX [Concomitant]
     Active Substance: VALACYCLOVIR HYDROCHLORIDE
     Route: 065
  10. PANTOPRAZOL ACTAVIS 20 MG ENTERIC-COATED TABLET [Concomitant]
     Route: 065
  11. OFTAGEL 2,5 MG/G EYE GEL [Concomitant]
     Route: 065
  12. LATANOPROST ACTAVIS 50 MICROGRAM/ML EYE DROPS, SOLUTION [Concomitant]
     Route: 065
  13. METOPROLOL ORION 50 MG PROLONGED-RELEASE TABLET [Concomitant]
     Route: 065
  14. PARAFLEX 250 MG TABLET [Concomitant]
     Route: 065
  15. ALPHAGAN 0,2 % (2 MG/ML) EYE DROPS, SOLUTION [Concomitant]
     Route: 065
  16. FOLIC ACID PILUM 5 MG TABLET [Concomitant]
     Route: 065
  17. AZARGA 10 MG/ML + 5 MG/ML EYE DROPS, SUSPENSION [Concomitant]
     Route: 065
  18. ACETYLCYSTEIN MEDA 200 MG EFFERVESCENT TABLET [Concomitant]
     Route: 065
  19. CITODON 500 MG/30 MG EFFERVESCENT TABLET [Concomitant]
     Route: 065
  20. CLOPIDOGREL [Suspect]
     Active Substance: CLOPIDOGREL BISULFATE
     Dosage: 75 MILLIGRAM DAILY;
     Route: 065
  21. VALTREX [Concomitant]
     Active Substance: VALACYCLOVIR HYDROCHLORIDE
     Route: 065
  22. OVESTERIN 0,5 MG VAGINAL INSERT [Concomitant]
     Route: 065

REACTIONS (1)
  - Cerebral haemorrhage [Fatal]

NARRATIVE: CASE EVENT DATE: 20171112
